FAERS Safety Report 9251935 (Version 1)
Quarter: 2013Q2

REPORT INFORMATION
  Report Type: Spontaneous
  Country: US (occurrence: US)
  Receive Date: 20130424
  Receipt Date: 20130424
  Transmission Date: 20140414
  Serious: Yes (Other)
  Sender: FDA-Public Use
  Company Number: US-PFIZER INC-2013124907

PATIENT
  Age: 53 Year
  Sex: Female

DRUGS (5)
  1. NEURONTIN [Suspect]
     Indication: BACK PAIN
     Dosage: 600 MG, 3X/DAY
     Dates: start: 2012
  2. NEURONTIN [Suspect]
     Indication: SCIATICA
     Dosage: 600 MG, 1X/DAY
  3. NORVASC [Concomitant]
     Indication: CARDIAC DISORDER
     Dosage: 10 MG, 1X/DAY
  4. HYDROCHLOROTHIAZIDE WITH POTASSIUM [Concomitant]
     Dosage: UNK, 1X/DAY
  5. SIMVASTATIN [Concomitant]
     Indication: BLOOD CHOLESTEROL ABNORMAL
     Dosage: 20 MG, 1X/DAY

REACTIONS (5)
  - Weight increased [Unknown]
  - Intentional drug misuse [Unknown]
  - Pain [Unknown]
  - Oedema [Unknown]
  - Sleep talking [Unknown]
